FAERS Safety Report 10960779 (Version 1)
Quarter: 2015Q1

REPORT INFORMATION
  Report Type: Spontaneous
  Country: CA (occurrence: CA)
  Receive Date: 20150327
  Receipt Date: 20150327
  Transmission Date: 20150721
  Serious: Yes (Disabling, Other)
  Sender: FDA-Public Use
  Company Number: CA-TEVA-550988ACC

PATIENT
  Sex: Male
  Weight: 79.9 kg

DRUGS (11)
  1. TEVA-NAPROXEN [Suspect]
     Active Substance: NAPROXEN
     Indication: PAIN
     Dosage: 1000 MILLIGRAM DAILY;
     Route: 048
  2. METROCREAM - CRM [Concomitant]
     Route: 065
  3. CALCIUM [Concomitant]
     Active Substance: CALCIUM
     Dosage: UNKNOWN FORM STRENGTH
     Route: 065
  4. ELOCOM [Concomitant]
     Active Substance: MOMETASONE FUROATE
     Dosage: UNKNOWN FORM STRENGTH
     Route: 065
  5. HYDROVAL CREAM [Concomitant]
     Route: 065
  6. IMOVANE [Concomitant]
     Active Substance: ZOPICLONE
     Dosage: UNKNOWN FORM STRENGTH
     Route: 065
  7. PANTOPRAZOLE [Concomitant]
     Active Substance: PANTOPRAZOLE SODIUM
     Dosage: UNKNOWN FORM STRENGTH
     Route: 065
  8. PAXIL [Concomitant]
     Active Substance: PAROXETINE HYDROCHLORIDE
     Dosage: UNKNOWN FORM STRENGTH
     Route: 065
  9. STATEX [Concomitant]
     Active Substance: MORPHINE SULFATE
     Dosage: UNKNOWN FORM STRENGTH
     Route: 065
  10. VALTREX [Concomitant]
     Active Substance: VALACYCLOVIR HYDROCHLORIDE
     Dosage: UNKNOWN FORM STRENGTH
     Route: 065
  11. VITAMIN D [Concomitant]
     Active Substance: CHOLECALCIFEROL
     Dosage: UNKNOWN FORM STRENGTH
     Route: 065

REACTIONS (1)
  - Restless legs syndrome [Recovered/Resolved]
